FAERS Safety Report 7641481-X (Version None)
Quarter: 2011Q3

REPORT INFORMATION
  Report Type: 
  Country: None (occurrence: None)
  Receive Date: 20110728
  Receipt Date: 20110719
  Transmission Date: 20111222
  Serious: Yes (Hospitalization, Other)
  Sender: FDA-Public Use
  Company Number: US-AMGEN-USASP2011036687

PATIENT
  Sex: Female

DRUGS (2)
  1. PROLIA [Suspect]
     Indication: OSTEOPOROSIS POSTMENOPAUSAL
     Dates: start: 20110601
  2. PROLIA [Suspect]
     Dates: start: 20110601

REACTIONS (6)
  - BLOOD CHOLESTEROL INCREASED [None]
  - BACK PAIN [None]
  - BLOOD POTASSIUM DECREASED [None]
  - BLOOD CALCIUM DECREASED [None]
  - MUSCLE SPASMS [None]
  - BLOOD MAGNESIUM DECREASED [None]
